FAERS Safety Report 7661604 (Version 2)
Quarter: 2013Q3

REPORT INFORMATION
  Report Type: Report from Study
  Country: DZ (occurrence: DZ)
  Receive Date: 20101109
  Receipt Date: 20130703
  Transmission Date: 20140515
  Serious: Yes (Life-Threatening, Hospitalization)
  Sender: FDA-Public Use
  Company Number: DZ-ROCHE-738052

PATIENT
  Age: 38 Year
  Sex: Female

DRUGS (2)
  1. TRASTUZUMAB [Suspect]
     Indication: BREAST CANCER
     Dosage: FREQUENCY: PER CURE.
     Route: 042
     Dates: start: 20100128, end: 201010
  2. DOCETAXEL [Suspect]
     Indication: BREAST CANCER
     Route: 042
     Dates: start: 20100128, end: 20100422

REACTIONS (4)
  - Pulmonary embolism [Recovering/Resolving]
  - Cardio-respiratory distress [Recovering/Resolving]
  - Atrial thrombosis [Unknown]
  - Cardiac ventricular thrombosis [Unknown]
